FAERS Safety Report 5296745-4 (Version None)
Quarter: 2007Q2

REPORT INFORMATION
  Report Type: 
  Country: None (occurrence: None)
  Receive Date: 20070413
  Receipt Date: 20070402
  Transmission Date: 20071010
  Serious: Yes (Death, Hospitalization)
  Sender: FDA-Public Use
  Company Number: JP-PFIZER INC-2007026898

PATIENT
  Age: 69 Year
  Sex: Male
  Weight: 46.4 kg

DRUGS (10)
  1. VFEND [Suspect]
     Indication: SYSTEMIC CANDIDA
     Dosage: DAILY DOSE:600MG
     Route: 048
     Dates: start: 20060627, end: 20060627
  2. VFEND [Suspect]
     Route: 048
     Dates: start: 20060628, end: 20060813
  3. ADONA [Concomitant]
     Route: 048
  4. ALL OTHER THERAPEUTIC PRODUCTS [Concomitant]
     Route: 048
  5. LEVOFLOXACIN [Concomitant]
     Route: 048
     Dates: start: 20060627, end: 20060629
  6. BAKTAR [Concomitant]
     Route: 048
  7. FLOMOX [Concomitant]
     Route: 048
     Dates: start: 20060629, end: 20060709
  8. MAGNESIUM OXIDE [Concomitant]
     Route: 048
  9. TAKEPRON [Concomitant]
     Route: 048
  10. BROACT [Concomitant]
     Route: 042
     Dates: start: 20060708, end: 20060710

REACTIONS (2)
  - CHOLECYSTITIS [None]
  - DEATH [None]
